FAERS Safety Report 25654532 (Version 1)
Quarter: 2025Q3

REPORT INFORMATION
  Report Type: Spontaneous
  Country: US (occurrence: None)
  Receive Date: 20250806
  Receipt Date: 20250806
  Transmission Date: 20251021
  Serious: Yes (Other)
  Sender: FDA-CTU
  Company Number: None

PATIENT
  Sex: Male

DRUGS (5)
  1. XEOMIN [Suspect]
     Active Substance: INCOBOTULINUMTOXINA
     Indication: Hemiplegia
     Dates: start: 20250529
  2. AMLODIPINE TAB [Concomitant]
  3. CALCIUM [Concomitant]
     Active Substance: CALCIUM
  4. KP VITAMIN D [Concomitant]
  5. OMEGA-3 CAP [Concomitant]

REACTIONS (1)
  - Cerebrovascular accident [None]
